FAERS Safety Report 7893465-4 (Version None)
Quarter: 2011Q4

REPORT INFORMATION
  Report Type: 
  Country: None (occurrence: None)
  Receive Date: 20111104
  Receipt Date: 20111102
  Transmission Date: 20120403
  Serious: No
  Sender: FDA-Public Use
  Company Number: US-TEVA-307677USA

PATIENT
  Sex: Male

DRUGS (2)
  1. GABAPENTIN [Concomitant]
     Route: 048
  2. COPAXONE [Suspect]
     Indication: MULTIPLE SCLEROSIS
     Dosage: 20 MILLIGRAM;
     Route: 058
     Dates: start: 20090101

REACTIONS (1)
  - SEXUAL DYSFUNCTION [None]
